FAERS Safety Report 5225749-2 (Version None)
Quarter: 2007Q1

REPORT INFORMATION
  Report Type: 
  Country: None (occurrence: None)
  Receive Date: 20070131
  Receipt Date: 20070131
  Transmission Date: 20070707
  Serious: Yes (Life-Threatening, Hospitalization)
  Sender: FDA-Public Use
  Company Number: None

PATIENT
  Age: 63 Year
  Sex: Male
  Weight: 67.586 kg

DRUGS (3)
  1. BEVACIZUMAB [Suspect]
     Indication: NEOPLASM MALIGNANT
     Dosage: 15 MG/KG EVERY 3 WEEKS
  2. BUBBLE GUM ENEMA [Suspect]
     Indication: CONSTIPATION
     Dosage: 500 ML, 1:1 RECTAL
     Route: 054
     Dates: start: 20070122, end: 20070122
  3. METHYLPREDNISOLONE 16MG TAB [Concomitant]

REACTIONS (6)
  - ABDOMINAL PAIN [None]
  - CONSTIPATION [None]
  - FLATULENCE [None]
  - HAEMOPTYSIS [None]
  - PNEUMONIA [None]
  - PURULENCE [None]
